FAERS Safety Report 13097474 (Version 1)
Quarter: 2017Q1

REPORT INFORMATION
  Report Type: Spontaneous
  Country: US (occurrence: US)
  Receive Date: 20170109
  Receipt Date: 20170109
  Transmission Date: 20170428
  Serious: No
  Sender: FDA-Public Use
  Company Number: US-JNJFOC-20161222310

PATIENT
  Age: 14 Month
  Sex: Female
  Weight: 10.89 kg

DRUGS (2)
  1. CHILDRENS MOTRIN COLD [Suspect]
     Active Substance: IBUPROFEN\PSEUDOEPHEDRINE HYDROCHLORIDE
     Route: 048
  2. CHILDRENS MOTRIN COLD [Suspect]
     Active Substance: IBUPROFEN\PSEUDOEPHEDRINE HYDROCHLORIDE
     Indication: MALAISE
     Route: 048
     Dates: start: 20161223

REACTIONS (1)
  - Drug administration error [Unknown]
